FAERS Safety Report 15210298 (Version 2)
Quarter: 2018Q4

REPORT INFORMATION
  Report Type: Spontaneous
  Country: IE (occurrence: IE)
  Receive Date: 20180727
  Receipt Date: 20181221
  Transmission Date: 20190204
  Serious: Yes (Death)
  Sender: FDA-Public Use
  Company Number: PHHY2018IE053350

PATIENT
  Age: 24 Year
  Sex: Female

DRUGS (24)
  1. LACOSAMIDE. [Concomitant]
     Active Substance: LACOSAMIDE
     Indication: SEIZURE
     Dosage: 200 MG, UNK (100 MG, 2X/DAY)
     Route: 065
  2. SODIUM THIOPENTAL MITSUBISHI [Concomitant]
     Indication: SEIZURE
     Dosage: UNK
     Route: 065
  3. AZTREONAM. [Concomitant]
     Active Substance: AZTREONAM
     Indication: SEPSIS
     Dosage: UNK
     Route: 065
  4. MEROPENEM. [Suspect]
     Active Substance: MEROPENEM
     Indication: DEVICE RELATED SEPSIS
  5. VANCOMYCIN HYDROCHLORIDE. [Interacting]
     Active Substance: VANCOMYCIN HYDROCHLORIDE
     Indication: SEPSIS
     Dosage: UNK
     Route: 065
  6. MIDAZOLAM [Concomitant]
     Active Substance: MIDAZOLAM HYDROCHLORIDE
     Indication: STATUS EPILEPTICUS
     Dosage: 10 MG, UNK (10 MG/H)
     Route: 042
  7. LEVETIRACETAM. [Concomitant]
     Active Substance: LEVETIRACETAM
     Indication: STATUS EPILEPTICUS
  8. MEROPENEM. [Suspect]
     Active Substance: MEROPENEM
     Indication: SEPSIS
     Dosage: UNK
     Route: 040
  9. MEROPENEM. [Suspect]
     Active Substance: MEROPENEM
     Indication: URINARY TRACT INFECTION
  10. VALPROATE SODIUM. [Suspect]
     Active Substance: VALPROATE SODIUM
     Indication: STATUS EPILEPTICUS
     Dosage: 1800 MG, UNK (600 MG, 3X/DAY)
     Route: 040
  11. CASPOFUNGIN ACETATE. [Interacting]
     Active Substance: CASPOFUNGIN ACETATE
     Indication: DEVICE RELATED SEPSIS
  12. LACOSAMIDE. [Concomitant]
     Active Substance: LACOSAMIDE
     Indication: STATUS EPILEPTICUS
  13. PIPERACILLIN AND TAZOBACTAM [Suspect]
     Active Substance: PIPERACILLIN SODIUM\TAZOBACTAM SODIUM
     Indication: DEVICE RELATED SEPSIS
     Dosage: UNK
     Route: 065
  14. PHENYTOIN. [Concomitant]
     Active Substance: PHENYTOIN
     Indication: SEIZURE
     Dosage: 300 MG, QD (100MG, 3X/DAY)
     Route: 065
  15. PHENYTOIN. [Concomitant]
     Active Substance: PHENYTOIN
     Indication: STATUS EPILEPTICUS
  16. SODIUM THIOPENTAL MITSUBISHI [Concomitant]
     Indication: STATUS EPILEPTICUS
  17. PROPOFOL. [Concomitant]
     Active Substance: PROPOFOL
     Indication: SEIZURE
     Dosage: UNK
     Route: 042
  18. PROPOFOL. [Concomitant]
     Active Substance: PROPOFOL
     Indication: STATUS EPILEPTICUS
  19. LEVETIRACETAM. [Concomitant]
     Active Substance: LEVETIRACETAM
     Indication: SEIZURE
     Dosage: 3000 MG, QD (1500 MG, 2X/ DAY
     Route: 065
  20. PIPERACILLIN AND TAZOBACTAM [Interacting]
     Active Substance: PIPERACILLIN SODIUM\TAZOBACTAM SODIUM
     Indication: SEPSIS
  21. VALPROATE SODIUM. [Suspect]
     Active Substance: VALPROATE SODIUM
     Indication: SEIZURE
  22. CASPOFUNGIN ACETATE. [Interacting]
     Active Substance: CASPOFUNGIN ACETATE
     Indication: SEPSIS
     Dosage: UNK
     Route: 065
  23. VANCOMYCIN HYDROCHLORIDE. [Interacting]
     Active Substance: VANCOMYCIN HYDROCHLORIDE
     Indication: DEVICE RELATED SEPSIS
  24. MIDAZOLAM [Concomitant]
     Active Substance: MIDAZOLAM HYDROCHLORIDE
     Indication: SEIZURE

REACTIONS (3)
  - Drug interaction [Unknown]
  - Drug ineffective [Fatal]
  - Drug level decreased [Not Recovered/Not Resolved]
